FAERS Safety Report 5831780-6 (Version None)
Quarter: 2008Q3

REPORT INFORMATION
  Report Type: 
  Country: None (occurrence: None)
  Receive Date: 20080803
  Receipt Date: 20080731
  Transmission Date: 20090109
  Serious: Yes (Hospitalization)
  Sender: FDA-Public Use
  Company Number: PHEH1999US05348

PATIENT
  Sex: Female
  Weight: 68 kg

DRUGS (16)
  1. NEORAL [Suspect]
     Indication: LUNG TRANSPLANT
     Route: 048
     Dates: end: 19991121
  2. RAD 666 RAD+ [Suspect]
     Indication: LUNG TRANSPLANT
     Dosage: 1.5 MG, BID
     Route: 048
     Dates: start: 19990302, end: 19991121
  3. ACYCLOVIR [Concomitant]
  4. BACTRIM [Concomitant]
  5. CARDIZEM [Concomitant]
  6. FLOVENT [Concomitant]
  7. ISONIAZID [Concomitant]
  8. IRON [Concomitant]
  9. LASIX [Concomitant]
  10. MAGNESIUM OXIDE [Concomitant]
  11. PREDNISONE [Concomitant]
  12. PREVACID [Concomitant]
  13. SPIRONOLACTONE [Concomitant]
  14. VITAMIN B1 TAB [Concomitant]
  15. VITAMIN B6 [Concomitant]
  16. ASCORBIC ACID [Concomitant]

REACTIONS (7)
  - DEHYDRATION [None]
  - DIARRHOEA [None]
  - LIVER FUNCTION TEST ABNORMAL [None]
  - NAUSEA [None]
  - RENAL FAILURE ACUTE [None]
  - VOLUME BLOOD DECREASED [None]
  - VOMITING [None]
